FAERS Safety Report 15383981 (Version 1)
Quarter: 2018Q3

REPORT INFORMATION
  Report Type: Spontaneous
  Country: US (occurrence: US)
  Receive Date: 20180914
  Receipt Date: 20180914
  Transmission Date: 20181010
  Serious: No
  Sender: FDA-Public Use
  Company Number: US-BRISTOL-MYERS SQUIBB COMPANY-BMS-2018-083981

PATIENT
  Age: 45 Year
  Sex: Male

DRUGS (1)
  1. TRIAMCINOLONE ACETONIDE. [Suspect]
     Active Substance: TRIAMCINOLONE ACETONIDE
     Indication: OCULAR SARCOIDOSIS
     Dosage: 1 ML, Q6WK
     Route: 065

REACTIONS (2)
  - Incorrect route of drug administration [Unknown]
  - Intraocular pressure increased [Recovering/Resolving]
